FAERS Safety Report 9224525 (Version 2)
Quarter: 2013Q3

REPORT INFORMATION
  Report Type: Spontaneous
  Country: US (occurrence: None)
  Receive Date: 20120914
  Receipt Date: 20130916
  Transmission Date: 20140515
  Serious: Yes (Hospitalization)
  Sender: FDA-Public Use
  Company Number: JPI-P-022561

PATIENT
  Age: 73 Year
  Sex: Female
  Weight: 81.65 kg

DRUGS (5)
  1. XYREM [Suspect]
     Indication: CATAPLEXY
     Dosage: 4.5 GM
     Route: 048
     Dates: start: 20120607, end: 2012
  2. ENALAPRIL [Concomitant]
  3. METHYLPHENIDATE HYDROCHLORIDE [Concomitant]
  4. ARMODAFINIL [Concomitant]
  5. HYDROCHLOROTHIAZIDE [Concomitant]

REACTIONS (3)
  - Pneumonia [None]
  - Cough [None]
  - Bronchitis [None]
